FAERS Safety Report 7883187-8 (Version None)
Quarter: 2011Q4

REPORT INFORMATION
  Report Type: 
  Country: None (occurrence: None)
  Receive Date: 20111031
  Receipt Date: 20111017
  Transmission Date: 20120403
  Serious: Yes (Hospitalization)
  Sender: FDA-Public Use
  Company Number: FK201102324

PATIENT
  Age: 69 Year
  Sex: Male

DRUGS (4)
  1. DEXAMETHASONE [Suspect]
     Indication: MULTIPLE MYELOMA
     Dosage: SEE IMAGE
     Route: 048
     Dates: start: 20110426, end: 20110721
  2. DEXAMETHASONE [Suspect]
     Indication: MULTIPLE MYELOMA
     Dosage: SEE IMAGE
     Route: 048
     Dates: start: 20110426, end: 20110721
  3. DOXIL [Suspect]
     Indication: MULTIPLE MYELOMA
     Dosage: 10 MG, 2XWEEKLY, DAYS 1+4Q7D, 1 WK OFF Q14D, INTRAVENOUS (NOT OTHERWISE SPECIFIED)
     Route: 042
     Dates: start: 20110426, end: 20110721
  4. BORTEZOMIB [Suspect]
     Indication: MULTIPLE MYELOMA
     Dosage: 2 MG, 2XWEEKLY, DAYS: 1+4Q7D; 1 WK OFF A14D, INTRAVENOUS (NOTOTHERWISE SPECIFIED)
     Route: 042
     Dates: start: 20110426, end: 20110721

REACTIONS (2)
  - LOSS OF CONSCIOUSNESS [None]
  - FALL [None]
